FAERS Safety Report 11784800 (Version 6)
Quarter: 2019Q3

REPORT INFORMATION
  Report Type: Report from Study
  Country: CA (occurrence: CA)
  Receive Date: 20151130
  Receipt Date: 20190814
  Transmission Date: 20191004
  Serious: Yes (Other)
  Sender: FDA-Public Use
  Company Number: CA-ROCHE-1668122

PATIENT
  Age: 73 Year
  Sex: Female

DRUGS (7)
  1. HUMIRA [Concomitant]
     Active Substance: ADALIMUMAB
     Indication: PRODUCT USED FOR UNKNOWN INDICATION
     Route: 065
  2. HIZENTRA [Concomitant]
     Active Substance: HUMAN IMMUNOGLOBULIN G
     Indication: PRODUCT USED FOR UNKNOWN INDICATION
     Route: 065
  3. XOLAIR [Suspect]
     Active Substance: OMALIZUMAB
     Indication: CHRONIC SPONTANEOUS URTICARIA
     Route: 058
     Dates: start: 20111214
  4. XOLAIR [Suspect]
     Active Substance: OMALIZUMAB
     Route: 058
     Dates: start: 20190220
  5. CORTISONE [Suspect]
     Active Substance: CORTISONE
     Indication: VERTIGO
  6. CORTISONE [Suspect]
     Active Substance: CORTISONE
     Indication: EAR DISORDER
     Dosage: HIGH DOSE
     Route: 065
  7. CORTISONE [Suspect]
     Active Substance: CORTISONE
     Indication: PANCREATITIS

REACTIONS (14)
  - Bronchospasm [Unknown]
  - Pruritus [Unknown]
  - Asthma [Unknown]
  - Pancreatitis [Unknown]
  - Foot fracture [Unknown]
  - Autoimmune hepatitis [Unknown]
  - Anaphylactic shock [Unknown]
  - Rash pustular [Unknown]
  - Vertigo [Unknown]
  - Urticaria [Unknown]
  - Temperature intolerance [Unknown]
  - Photosensitivity reaction [Unknown]
  - Ear disorder [Unknown]
  - Hypotension [Unknown]

NARRATIVE: CASE EVENT DATE: 20190731
